FAERS Safety Report 6916461-X (Version None)
Quarter: 2010Q3

REPORT INFORMATION
  Report Type: 
  Country: None (occurrence: None)
  Receive Date: 20100810
  Receipt Date: 20100728
  Transmission Date: 20110219
  Serious: Yes (Hospitalization)
  Sender: FDA-Public Use
  Company Number: PHFR2010IE01457

PATIENT
  Sex: Male

DRUGS (2)
  1. CLOZARIL [Suspect]
     Indication: SCHIZOPHRENIA
     Dosage: UNK
     Route: 048
     Dates: start: 20051115
  2. CLOZARIL [Suspect]
     Route: 048
     Dates: start: 20051115, end: 19000101

REACTIONS (5)
  - APPENDICECTOMY [None]
  - APPENDICITIS [None]
  - EYE SWELLING [None]
  - LEUKOCYTOSIS [None]
  - NEUTROPHILIA [None]
